FAERS Safety Report 19784592 (Version 1)
Quarter: 2021Q3

REPORT INFORMATION
  Report Type: Spontaneous
  Country: US (occurrence: US)
  Receive Date: 20210903
  Receipt Date: 20210903
  Transmission Date: 20211014
  Serious: Yes (Hospitalization)
  Sender: FDA-Public Use
  Company Number: US-BRISTOL-MYERS SQUIBB COMPANY-BMS-2021-087218

PATIENT
  Age: 69 Year
  Sex: Male

DRUGS (1)
  1. SPRYCEL [Suspect]
     Active Substance: DASATINIB
     Indication: MYELOFIBROSIS
     Dosage: 80 MILLIGRAM, QD
     Route: 048
     Dates: start: 20210212

REACTIONS (2)
  - Intentional product use issue [Unknown]
  - Hospitalisation [Unknown]
